FAERS Safety Report 17142094 (Version 2)
Quarter: 2019Q4

REPORT INFORMATION
  Report Type: Spontaneous
  Country: SK (occurrence: SK)
  Receive Date: 20191211
  Receipt Date: 20191212
  Transmission Date: 20200122
  Serious: Yes (Other)
  Sender: FDA-Public Use
  Company Number: SK-JNJFOC-20191145895

PATIENT
  Age: 71 Year
  Sex: Male

DRUGS (1)
  1. DARZALEX [Suspect]
     Active Substance: DARATUMUMAB
     Indication: PLASMA CELL MYELOMA
     Route: 065
     Dates: start: 20190731

REACTIONS (3)
  - Drug ineffective [Unknown]
  - Monoclonal gammopathy [Unknown]
  - Perirectal abscess [Unknown]

NARRATIVE: CASE EVENT DATE: 2019
